FAERS Safety Report 6590064-1 (Version None)
Quarter: 2010Q1

REPORT INFORMATION
  Report Type: 
  Country: None (occurrence: None)
  Receive Date: 20100219
  Receipt Date: 20100215
  Transmission Date: 20100710
  Serious: Yes (Death)
  Sender: FDA-Public Use
  Company Number: PHEH2010US00505

PATIENT
  Sex: Male

DRUGS (17)
  1. NEORAL [Suspect]
     Indication: RENAL TRANSPLANT
     Dosage: 25 MG, BID
     Route: 048
     Dates: start: 19870701
  2. LASIX [Concomitant]
     Dosage: 11/2 EVERY MORNING AND 1PRN
     Dates: start: 20091208
  3. PROCRIT [Concomitant]
     Dosage: 4000 U/ML, QW
  4. CELLCEPT [Concomitant]
     Dosage: 2 DF, BID
     Route: 048
     Dates: start: 20091208
  5. LOPRESSOR [Concomitant]
     Dosage: 50 MG, BID
     Route: 048
     Dates: start: 20091208
  6. ASPIRIN [Concomitant]
     Dosage: 81 MG, QD
     Dates: start: 20091208
  7. MINIPRESS [Concomitant]
     Dosage: 2 EVERY DAY AT BED TIME
     Dates: start: 20091208
  8. PERCOCET [Concomitant]
     Dosage: 5 - 325 MG TABLETS
     Dates: start: 20091208
  9. CIPRO [Concomitant]
     Dosage: 1 DF, BID
     Dates: start: 20091208
  10. TIAZAC [Concomitant]
     Dosage: 120 MG, 1 EVERY DAY FOR 30 DAYS
     Dates: start: 20091208
  11. COLACE [Concomitant]
     Dosage: 1 DF, BID
     Dates: start: 20091208
  12. MAGNESIUM OXIDE [Concomitant]
     Dosage: 2 TIMES A DAY FOR 60 DAYS
     Dates: start: 20091208
  13. SENNA [Concomitant]
     Dosage: 8.6 MG, QD
     Dates: start: 20091208
  14. TYLENOL-500 [Concomitant]
     Dosage: 1000 MG, PRN
     Dates: start: 20090908
  15. LEXAPRO [Concomitant]
     Dosage: 10 MG, QD
     Dates: start: 20090414
  16. PREVACID [Concomitant]
     Dosage: 30 MG, QD
     Dates: start: 20090119
  17. PREDNISONE [Concomitant]
     Dosage: 10 MG, QD
     Dates: start: 20080711

REACTIONS (6)
  - ARM AMPUTATION [None]
  - METASTATIC SQUAMOUS CELL CARCINOMA [None]
  - OSTEOARTHRITIS [None]
  - SEPSIS [None]
  - URINARY RETENTION [None]
  - UROSEPSIS [None]
